FAERS Safety Report 15060768 (Version 3)
Quarter: 2019Q2

REPORT INFORMATION
  Report Type: Spontaneous
  Country: BR (occurrence: BR)
  Receive Date: 20180625
  Receipt Date: 20190605
  Transmission Date: 20190711
  Serious: Yes (Other)
  Sender: FDA-Public Use
  Company Number: BR-ALEXION PHARMACEUTICALS INC.-A201804976

PATIENT
  Age: 32 Year
  Sex: Female

DRUGS (4)
  1. SOLIRIS [Suspect]
     Active Substance: ECULIZUMAB
     Dosage: 900 MG, Q2W
     Route: 042
     Dates: start: 20170324
  2. SOLIRIS [Suspect]
     Active Substance: ECULIZUMAB
     Dosage: 900 MG, Q2W
     Route: 042
  3. SOLIRIS [Suspect]
     Active Substance: ECULIZUMAB
     Indication: PAROXYSMAL NOCTURNAL HAEMOGLOBINURIA
     Dosage: 600 MG, QW
     Route: 042
     Dates: start: 20170227, end: 20170317
  4. FOLIC ACID. [Concomitant]
     Active Substance: FOLIC ACID
     Indication: PAROXYSMAL NOCTURNAL HAEMOGLOBINURIA
     Dosage: 1 TABLET, QD
     Route: 065
     Dates: start: 2015

REACTIONS (16)
  - Haemolysis [Recovered/Resolved]
  - Inappropriate schedule of product administration [Recovered/Resolved]
  - Fatigue [Recovered/Resolved]
  - Malaise [Recovered/Resolved]
  - Asthenia [Unknown]
  - Premature separation of placenta [Recovered/Resolved]
  - Nephrolithiasis [Recovered/Resolved]
  - Pain in extremity [Recovered/Resolved]
  - Chromaturia [Recovered/Resolved]
  - Proteinuria [Recovered/Resolved]
  - Headache [Recovered/Resolved]
  - Exposure during pregnancy [Recovered/Resolved]
  - Peripheral swelling [Recovered/Resolved]
  - Renal pain [Recovered/Resolved]
  - Abdominal pain [Unknown]
  - Hypertension [Recovered/Resolved]

NARRATIVE: CASE EVENT DATE: 20171107
